FAERS Safety Report 9989854 (Version 1)
Quarter: 2014Q1

REPORT INFORMATION
  Report Type: Report from Study
  Country: US (occurrence: US)
  Receive Date: 20140310
  Receipt Date: 20140310
  Transmission Date: 20141002
  Serious: No
  Sender: FDA-Public Use
  Company Number: US-ABBVIE-13P-163-1129037-00

PATIENT
  Sex: Male
  Weight: 108.96 kg

DRUGS (3)
  1. HUMIRA [Suspect]
     Indication: PSORIASIS
     Route: 058
     Dates: start: 2012, end: 201302
  2. ANTIHYPERTENSIVES [Concomitant]
     Indication: HYPERTENSION
  3. UNKNOWN DIABETES MEDICATION [Concomitant]
     Indication: DIABETES MELLITUS

REACTIONS (2)
  - Blood iron increased [Not Recovered/Not Resolved]
  - Hepatic enzyme increased [Recovered/Resolved]
